FAERS Safety Report 14368917 (Version 1)
Quarter: 2018Q1

REPORT INFORMATION
  Report Type: Spontaneous
  Country: US (occurrence: US)
  Receive Date: 20180109
  Receipt Date: 20180109
  Transmission Date: 20180509
  Serious: No
  Sender: FDA-Public Use
  Company Number: US-DRREDDYS-USA/USA/17/0088307

PATIENT
  Age: 57 Year
  Sex: Male
  Weight: 108.86 kg

DRUGS (1)
  1. HABITROL [Suspect]
     Active Substance: NICOTINE
     Indication: SMOKING CESSATION THERAPY
     Route: 061
     Dates: start: 20170323

REACTIONS (5)
  - Nausea [Recovering/Resolving]
  - Abdominal pain upper [Recovering/Resolving]
  - Wrong technique in product usage process [Unknown]
  - Headache [Recovering/Resolving]
  - Drooling [Recovering/Resolving]

NARRATIVE: CASE EVENT DATE: 20170323
